FAERS Safety Report 14978720 (Version 1)
Quarter: 2018Q2

REPORT INFORMATION
  Report Type: Spontaneous
  Country: IT (occurrence: IT)
  Receive Date: 20180606
  Receipt Date: 20180606
  Transmission Date: 20180711
  Serious: Yes (Hospitalization, Other)
  Sender: FDA-Public Use
  Company Number: IT-AUROBINDO-AUR-APL-2018-028983

PATIENT
  Sex: Male
  Weight: 3.3 kg

DRUGS (5)
  1. CLOZAPINE. [Suspect]
     Active Substance: CLOZAPINE
     Indication: SCHIZOPHRENIA
     Dosage: 300 MG/DAY THREE TIMES
     Route: 064
  2. LORAZEPAM TABLETS [Suspect]
     Active Substance: LORAZEPAM
     Dosage: 2.5 MILLIGRAM, 3 TIMES A DAY
     Route: 064
  3. CLOZAPINE. [Suspect]
     Active Substance: CLOZAPINE
     Dosage: 200 MILLIGRAM, DAILY
     Route: 064
  4. LORAZEPAM TABLETS [Suspect]
     Active Substance: LORAZEPAM
     Indication: PRODUCT USED FOR UNKNOWN INDICATION
     Dosage: 5 TABLETS A DAY
     Route: 064
  5. LORAZEPAM TABLETS [Suspect]
     Active Substance: LORAZEPAM
     Dosage: FREQUENTLY INCREASED THIS DOSE UP TO FIVE TABLETS A DAY
     Route: 064

REACTIONS (3)
  - Foetal exposure during pregnancy [Unknown]
  - Floppy infant [Recovered/Resolved]
  - Neonatal tachypnoea [Unknown]
